FAERS Safety Report 5431627-6 (Version None)
Quarter: 2007Q3

REPORT INFORMATION
  Report Type: 
  Country: None (occurrence: None)
  Receive Date: 20070830
  Receipt Date: 20070822
  Transmission Date: 20080115
  Serious: Yes (Other)
  Sender: FDA-Public Use
  Company Number: US-ELI_LILLY_AND_COMPANY-US200706000590

PATIENT
  Age: 65 Year
  Sex: Female

DRUGS (13)
  1. CYMBALTA [Suspect]
     Indication: SKIN ULCER
     Dosage: 4 DOSES
     Dates: start: 20070420, end: 20070423
  2. CYMBALTA [Suspect]
     Dosage: 30 MG, 9 DOSES
     Dates: start: 20070410, end: 20070419
  3. COZAAR [Concomitant]
     Dosage: 50 MG, DAILY (1/D)
     Dates: start: 20070409, end: 20070505
  4. LOPRESSOR [Concomitant]
     Dosage: 50-100 MG
     Dates: start: 20070409, end: 20070505
  5. BREVIBLOC [Concomitant]
     Dosage: 1 DOSE
     Dates: start: 20070419, end: 20070419
  6. FERRLECIT [Concomitant]
     Dosage: 125 MG, 1 DOSE
     Route: 042
     Dates: start: 20070420, end: 20070420
  7. PROCRIT [Concomitant]
     Dosage: 100000 U, 1 DOSE
     Dates: start: 20070420, end: 20070420
  8. ANCEF [Concomitant]
     Dosage: 1 G, UNK
     Dates: start: 20070418
  9. ANCEF [Concomitant]
     Dosage: 1 G, UNK
     Dates: start: 20070427
  10. VANCOMYCIN [Concomitant]
     Dosage: GIVEN EVERY 12-36 HOURS
     Dates: start: 20070410, end: 20070504
  11. MOTRIN [Concomitant]
  12. DILAUDID [Concomitant]
     Dosage: UNK, AS NEEDED
  13. OXYCONTIN [Concomitant]

REACTIONS (3)
  - ALANINE AMINOTRANSFERASE INCREASED [None]
  - ASPARTATE AMINOTRANSFERASE INCREASED [None]
  - BLOOD ALKALINE PHOSPHATASE INCREASED [None]
